FAERS Safety Report 7493624-9 (Version None)
Quarter: 2011Q2

REPORT INFORMATION
  Report Type: 
  Country: None (occurrence: None)
  Receive Date: 20110520
  Receipt Date: 20110506
  Transmission Date: 20111010
  Serious: Yes (Other)
  Sender: FDA-Public Use
  Company Number: GB-JNJFOC-20110503653

PATIENT
  Age: 70 Year
  Sex: Female

DRUGS (2)
  1. STEROIDS NOS [Concomitant]
  2. INFLIXIMAB, RECOMBINANT [Suspect]
     Indication: RHEUMATOID ARTHRITIS
     Route: 042
     Dates: start: 20030415, end: 20041015

REACTIONS (1)
  - BOWEN'S DISEASE [None]
